FAERS Safety Report 4598283-0 (Version None)
Quarter: 2005Q1

REPORT INFORMATION
  Report Type: 
  Country: None (occurrence: None)
  Receive Date: 20050301
  Receipt Date: 20050301
  Transmission Date: 20050727
  Serious: Yes (Other)
  Sender: FDA-Public Use
  Company Number: None

PATIENT
  Sex: Female

DRUGS (2)
  1. ULTRASE MT12 [Suspect]
     Indication: CYSTIC FIBROSIS
     Dosage: 4 W/ MEALS 4 W/ SNACKS AND INSTANT BREAKFAST
  2. ULTRASE MT12 [Suspect]
     Indication: PANCREATIC INSUFFICIENCY
     Dosage: 4 W/ MEALS 4 W/ SNACKS AND INSTANT BREAKFAST

REACTIONS (3)
  - ABDOMINAL PAIN [None]
  - DIARRHOEA [None]
  - WEIGHT DECREASED [None]
